FAERS Safety Report 18874798 (Version 7)
Quarter: 2021Q3

REPORT INFORMATION
  Report Type: Report from Study
  Country: US (occurrence: US)
  Receive Date: 20210210
  Receipt Date: 20210708
  Transmission Date: 20211014
  Serious: Yes (Other)
  Sender: FDA-Public Use
  Company Number: NVSC2021US030076

PATIENT
  Age: 59 Year
  Sex: Male

DRUGS (6)
  1. GABAPENTIN. [Concomitant]
     Active Substance: GABAPENTIN
     Indication: PRODUCT USED FOR UNKNOWN INDICATION
     Dosage: 300 MG, TID
     Route: 065
  2. FUROSEMIDE. [Concomitant]
     Active Substance: FUROSEMIDE
     Dosage: 40 MG
     Route: 065
  3. ENTRESTO [Suspect]
     Active Substance: SACUBITRIL\VALSARTAN
     Indication: PRODUCT USED FOR UNKNOWN INDICATION
     Dosage: 24.26 MG, BID
     Route: 048
     Dates: start: 20210204
  4. LASIX [Concomitant]
     Active Substance: FUROSEMIDE
     Indication: PRODUCT USED FOR UNKNOWN INDICATION
     Dosage: UNK
     Route: 065
  5. WATER PILLS [Concomitant]
     Active Substance: UNSPECIFIED INGREDIENT
     Indication: PRODUCT USED FOR UNKNOWN INDICATION
     Dosage: UNK
     Route: 065
  6. FUROSEMIDE. [Concomitant]
     Active Substance: FUROSEMIDE
     Indication: PRODUCT USED FOR UNKNOWN INDICATION
     Dosage: 20 MG
     Route: 065

REACTIONS (17)
  - Diabetic neuropathy [Unknown]
  - Neuropathy peripheral [Unknown]
  - Depression [Unknown]
  - Osteomyelitis [Unknown]
  - Malaise [Unknown]
  - Somnolence [Unknown]
  - Oral pain [Unknown]
  - Bone loss [Unknown]
  - Balance disorder [Unknown]
  - Arthralgia [Unknown]
  - Dehydration [Unknown]
  - Weight increased [Unknown]
  - Cranial nerve disorder [Unknown]
  - Fall [Unknown]
  - Weight decreased [Unknown]
  - Peripheral swelling [Unknown]
  - Cough [Unknown]

NARRATIVE: CASE EVENT DATE: 20210420
